FAERS Safety Report 19349816 (Version 2)
Quarter: 2021Q2

REPORT INFORMATION
  Report Type: Spontaneous
  Country: SE (occurrence: SE)
  Receive Date: 20210531
  Receipt Date: 20210601
  Transmission Date: 20210717
  Serious: Yes (Hospitalization)
  Sender: FDA-Public Use
  Company Number: SE-TEVA-2021-SE-1916004

PATIENT
  Age: 71 Year
  Sex: Female

DRUGS (10)
  1. VENLAFAXINE [Concomitant]
     Active Substance: VENLAFAXINE HYDROCHLORIDE
     Dosage: 75MG
  2. PARACETAMOL [Concomitant]
     Active Substance: ACETAMINOPHEN
     Dosage: 2 IF NECESSARY
  3. ELIQUIS [Concomitant]
     Active Substance: APIXABAN
     Dosage: 10MG
     Route: 065
  4. HALDOL [Concomitant]
     Active Substance: HALOPERIDOL
     Dosage: HALF IF NECESSARY
  5. HEMINEVRIN [Concomitant]
     Active Substance: CLOMETHIAZOLE
     Dosage: 300MG
  6. OMEPRAZOLE. [Suspect]
     Active Substance: OMEPRAZOLE
     Route: 065
     Dates: end: 202103
  7. ATORBIR [Suspect]
     Active Substance: ATORVASTATIN
     Route: 065
     Dates: end: 202103
  8. BISOPROLOL [Concomitant]
     Active Substance: BISOPROLOL
     Dosage: 2+1
  9. RAMIPRIL. [Concomitant]
     Active Substance: RAMIPRIL
     Dosage: 2.5MG
  10. TRIOBE [Concomitant]
     Dosage: 1DF

REACTIONS (2)
  - Hepatotoxicity [Unknown]
  - Hepatitis acute [Unknown]

NARRATIVE: CASE EVENT DATE: 202103
